FAERS Safety Report 12398616 (Version 1)
Quarter: 2016Q2

REPORT INFORMATION
  Report Type: Spontaneous
  Country: US (occurrence: US)
  Receive Date: 20160524
  Receipt Date: 20160524
  Transmission Date: 20160815
  Serious: No
  Sender: FDA-Public Use
  Company Number: US-SANOFI-AVENTIS-2012SA013416

PATIENT
  Age: 66 Year
  Sex: Female

DRUGS (2)
  1. LANTUS [Suspect]
     Active Substance: INSULIN GLARGINE
     Indication: TYPE 2 DIABETES MELLITUS
     Dosage: PRODUCT START DATE MENTIONED AS 3 OR MORE YEARS DOSE:50 UNIT(S)
     Route: 058
  2. NOVOLIN R [Concomitant]
     Active Substance: INSULIN HUMAN

REACTIONS (9)
  - Tremor [Unknown]
  - Discomfort [Unknown]
  - Glycosylated haemoglobin increased [Unknown]
  - Disorientation [Unknown]
  - Feeling abnormal [Unknown]
  - Blood triglycerides abnormal [Unknown]
  - Blood glucose increased [Unknown]
  - Blood pressure increased [Unknown]
  - Blood glucose decreased [Unknown]
